FAERS Safety Report 9910226 (Version 2)
Quarter: 2014Q1

REPORT INFORMATION
  Report Type: Spontaneous
  Country: US (occurrence: US)
  Receive Date: 20140219
  Receipt Date: 20140220
  Transmission Date: 20141002
  Serious: Yes (Other)
  Sender: FDA-Public Use
  Company Number: US-TEVA-463179USA

PATIENT
  Age: 60 Year
  Sex: Male

DRUGS (1)
  1. COPAXONE [Suspect]
     Indication: MULTIPLE SCLEROSIS
     Dates: start: 20110209, end: 201311

REACTIONS (3)
  - Renal cancer [Recovered/Resolved]
  - Gallbladder operation [Recovered/Resolved]
  - Back disorder [Unknown]
